FAERS Safety Report 21946483 (Version 1)
Quarter: 2023Q1

REPORT INFORMATION
  Report Type: Spontaneous
  Country: US (occurrence: US)
  Receive Date: 20230202
  Receipt Date: 20230202
  Transmission Date: 20230417
  Serious: No
  Sender: FDA-Public Use
  Company Number: US-INCYTE CORPORATION-2022IN006418

PATIENT

DRUGS (2)
  1. OPZELURA [Suspect]
     Active Substance: RUXOLITINIB PHOSPHATE
     Indication: Eczema
     Route: 061
  2. ESSENTIAL OILS NOS [Concomitant]
     Indication: Product used for unknown indication
     Dosage: QUANTITY OF THE CREAM ^BIGGER THAN A PEA^ OR ^SMALLER THAN A DIME^
     Route: 065

REACTIONS (3)
  - Product physical issue [Unknown]
  - Dermatitis contact [Unknown]
  - Eczema [Unknown]
